FAERS Safety Report 25763937 (Version 1)
Quarter: 2025Q3

REPORT INFORMATION
  Report Type: Spontaneous
  Country: US (occurrence: US)
  Receive Date: 20250905
  Receipt Date: 20250905
  Transmission Date: 20251021
  Serious: No
  Sender: DOMPE FARMACEUTICI
  Company Number: US-FARMAPROD-202411-4014

PATIENT
  Sex: Female

DRUGS (25)
  1. OXERVATE [Suspect]
     Active Substance: CENEGERMIN-BKBJ
     Indication: Neurotrophic keratopathy
     Route: 047
     Dates: start: 20241116
  2. SPIRIVA RESPIMAT [Concomitant]
     Active Substance: TIOTROPIUM BROMIDE
  3. MONTELUKAST SODIUM [Concomitant]
     Active Substance: MONTELUKAST SODIUM
  4. HYDROXYZINE HYDROCHLORIDE [Concomitant]
     Active Substance: HYDROXYZINE HYDROCHLORIDE
  5. FUROSEMIDE [Concomitant]
     Active Substance: FUROSEMIDE
  6. METOPROLOL SUCCINATE [Concomitant]
     Active Substance: METOPROLOL SUCCINATE
  7. DULOXETINE HYDROCHLORIDE [Concomitant]
     Active Substance: DULOXETINE HYDROCHLORIDE
  8. ATORVASTATIN CALCIUM [Concomitant]
     Active Substance: ATORVASTATIN CALCIUM
  9. NORTRIPTYLINE HYDROCHLORIDE [Concomitant]
     Active Substance: NORTRIPTYLINE HYDROCHLORIDE
  10. CLONAZEPAM [Concomitant]
     Active Substance: CLONAZEPAM
  11. ALBUTEROL SULFATE [Concomitant]
     Active Substance: ALBUTEROL SULFATE
  12. ERYTHROMYCIN [Concomitant]
     Active Substance: ERYTHROMYCIN
  13. NEOMYCIN-POLYMYXIN-DEXAMETH [Concomitant]
  14. CYCLOBENZAPRINE HYDROCHLORIDE [Concomitant]
     Active Substance: CYCLOBENZAPRINE HYDROCHLORIDE
  15. QUETIAPINE FUMARATE [Concomitant]
     Active Substance: QUETIAPINE FUMARATE
  16. PREGABALIN [Concomitant]
     Active Substance: PREGABALIN
  17. BUSPIRONE HCL [Concomitant]
     Active Substance: BUSPIRONE HYDROCHLORIDE
  18. VITAMIN D2 [Concomitant]
     Active Substance: ERGOCALCIFEROL
  19. DICLOFENAC POTASSIUM [Concomitant]
     Active Substance: DICLOFENAC POTASSIUM
  20. TRAMADOL HCL [Concomitant]
     Active Substance: TRAMADOL HYDROCHLORIDE
  21. FAMOTIDINE [Concomitant]
     Active Substance: FAMOTIDINE
  22. LOSARTAN POTASSIUM [Concomitant]
     Active Substance: LOSARTAN POTASSIUM
  23. TRESIBA [Concomitant]
     Active Substance: INSULIN DEGLUDEC
  24. TOPIRAMATE [Concomitant]
     Active Substance: TOPIRAMATE
  25. NOVOLOG [Concomitant]
     Active Substance: INSULIN ASPART

REACTIONS (1)
  - Eye pain [Unknown]
